FAERS Safety Report 20520453 (Version 2)
Quarter: 2022Q1

REPORT INFORMATION
  Report Type: Spontaneous
  Country: US (occurrence: US)
  Receive Date: 20220225
  Receipt Date: 20220304
  Transmission Date: 20220423
  Serious: Yes (Other)
  Sender: FDA-Public Use
  Company Number: US-TARO-2022TAR00280

PATIENT
  Age: 40 Year
  Sex: Female

DRUGS (1)
  1. CARBAMAZEPINE [Suspect]
     Active Substance: CARBAMAZEPINE
     Indication: Trigeminal neuralgia
     Dosage: 400 MILLIGRAM, BID, 24 H PRIOR TO PRESENTATION
     Route: 065

REACTIONS (2)
  - Neurological symptom [Unknown]
  - Toxicity to various agents [Unknown]
